FAERS Safety Report 4602964-X (Version None)
Quarter: 2005Q1

REPORT INFORMATION
  Report Type: 
  Country: None (occurrence: None)
  Receive Date: 20050309
  Receipt Date: 20050216
  Transmission Date: 20050727
  Serious: Yes (Other)
  Sender: FDA-Public Use
  Company Number: PHBS2005JP02430

PATIENT
  Age: 1 Day
  Sex: Female
  Weight: 2 kg

DRUGS (1)
  1. AREDIA [Suspect]
     Indication: OSTEOGENESIS IMPERFECTA
     Dosage: 1 MG/KG/D FOR 3 DAYS
     Route: 042

REACTIONS (5)
  - HEARING IMPAIRED [None]
  - INTERSTITIAL LUNG DISEASE [None]
  - LIFE SUPPORT [None]
  - PYREXIA [None]
  - RESPIRATORY TRACT INFECTION [None]
